FAERS Safety Report 9816403 (Version 1)
Quarter: 2014Q1

REPORT INFORMATION
  Report Type: Spontaneous
  Country: US (occurrence: US)
  Receive Date: 20140114
  Receipt Date: 20140114
  Transmission Date: 20141002
  Serious: Yes (Death)
  Sender: FDA-Public Use
  Company Number: US-PFIZER INC-2014005913

PATIENT
  Age: 22 Year
  Sex: Male

DRUGS (4)
  1. IBUPROFEN [Suspect]
     Route: 065
  2. ACETYLSALICYLIC ACID [Suspect]
     Dosage: UNK
     Route: 065
  3. DOXYLAMINE [Suspect]
     Route: 065
  4. ACETAMINOPHEN [Suspect]
     Dosage: UNK
     Route: 065

REACTIONS (1)
  - Completed suicide [Fatal]
